FAERS Safety Report 17576438 (Version 1)
Quarter: 2020Q1

REPORT INFORMATION
  Report Type: Spontaneous
  Country: US (occurrence: US)
  Receive Date: 20200324
  Receipt Date: 20200324
  Transmission Date: 20200409
  Serious: No
  Sender: FDA-Public Use
  Company Number: US-ACORDA-ACO_163700_2020

PATIENT
  Sex: Female

DRUGS (2)
  1. INBRIJA [Suspect]
     Active Substance: LEVODOPA
     Dosage: 2 CAPS (84 MILLIGRAM), 5X PER DAY, PRN
  2. INBRIJA [Suspect]
     Active Substance: LEVODOPA
     Indication: PARKINSON^S DISEASE
     Dosage: 2 CAPS (84 MILLIGRAM), 5X PER DAY, PRN
     Dates: start: 20190709

REACTIONS (3)
  - Dysgeusia [Unknown]
  - Device use issue [Unknown]
  - Cough [Unknown]
